FAERS Safety Report 26193482 (Version 1)
Quarter: 2025Q4

REPORT INFORMATION
  Report Type: Spontaneous
  Country: US (occurrence: US)
  Receive Date: 20251223
  Receipt Date: 20251223
  Transmission Date: 20260118
  Serious: No
  Sender: SANOFI AVENTIS
  Company Number: US-SA-2025SA382008

PATIENT
  Sex: Male
  Weight: 90.91 kg

DRUGS (12)
  1. DUPIXENT [Suspect]
     Active Substance: DUPILUMAB
     Indication: Dermatitis atopic
     Dosage: 300 MG, QOW
     Route: 058
  2. DUPIXENT [Suspect]
     Active Substance: DUPILUMAB
     Indication: Dermatitis
  3. SENNA SMOOTH [Concomitant]
  4. METHIMAZOLE [Concomitant]
     Active Substance: METHIMAZOLE
  5. ROBITUSSIN COUGH AND CHEST CONGESTION DM [Concomitant]
     Active Substance: DEXTROMETHORPHAN HYDROBROMIDE\GUAIFENESIN
  6. TYLENOL ARTHRITIS PAIN [Concomitant]
     Active Substance: ACETAMINOPHEN
  7. FLUOCINONIDE [Concomitant]
     Active Substance: FLUOCINONIDE
  8. SIMVASTATIN [Concomitant]
     Active Substance: SIMVASTATIN
  9. OLMESARTAN MEDOXOMIL [Concomitant]
     Active Substance: OLMESARTAN MEDOXOMIL
  10. FINASTERIDE [Concomitant]
     Active Substance: FINASTERIDE
  11. ASPIRIN [Concomitant]
     Active Substance: ASPIRIN
  12. LORATADINE [Concomitant]
     Active Substance: LORATADINE

REACTIONS (3)
  - Dry skin [Unknown]
  - Pruritus [Unknown]
  - Product use in unapproved indication [Unknown]
